FAERS Safety Report 12568830 (Version 2)
Quarter: 2016Q3

REPORT INFORMATION
  Report Type: Spontaneous
  Country: US (occurrence: US)
  Receive Date: 20160719
  Receipt Date: 20160927
  Transmission Date: 20161109
  Serious: Yes (Other)
  Sender: FDA-Public Use
  Company Number: US-SHIRE-US201608275

PATIENT
  Age: 59 Year
  Sex: Male
  Weight: 250.79 kg

DRUGS (2)
  1. CAPTIL [Concomitant]
     Indication: PRODUCT USED FOR UNKNOWN INDICATION
     Dosage: UNK, UNKNOWN
     Route: 065
  2. CARBATROL [Suspect]
     Active Substance: CARBAMAZEPINE
     Indication: SEIZURE
     Dosage: 200 MG, UNKNOWN
     Route: 048

REACTIONS (8)
  - Loss of consciousness [Recovered/Resolved]
  - Memory impairment [Unknown]
  - Contusion [Unknown]
  - Liver disorder [Unknown]
  - Confusional state [Unknown]
  - Fall [Recovered/Resolved]
  - Product quality issue [Unknown]
  - Lip injury [Unknown]

NARRATIVE: CASE EVENT DATE: 201606
